FAERS Safety Report 18415594 (Version 1)
Quarter: 2020Q4

REPORT INFORMATION
  Report Type: Spontaneous
  Country: US (occurrence: US)
  Receive Date: 20201022
  Receipt Date: 20201022
  Transmission Date: 20210114
  Serious: Yes (Hospitalization)
  Sender: FDA-Public Use
  Company Number: US-BIOVITRUM-2020US5580

PATIENT
  Sex: Male

DRUGS (8)
  1. PEPCID AC MAXIMUM STRENGT [Concomitant]
  2. SPIRONOLACTONE. [Concomitant]
     Active Substance: SPIRONOLACTONE
  3. EPANED [Concomitant]
     Active Substance: ENALAPRIL MALEATE
  4. SYNAGIS [Suspect]
     Active Substance: PALIVIZUMAB
     Indication: RESPIRATORY SYNCYTIAL VIRUS INFECTION
  5. SYNAGIS [Suspect]
     Active Substance: PALIVIZUMAB
     Indication: PROPHYLAXIS
     Route: 030
  6. LASIX [Concomitant]
     Active Substance: FUROSEMIDE
  7. GOODSENSE ASPIRIN ADULT L [Concomitant]
  8. COREG [Concomitant]
     Active Substance: CARVEDILOL

REACTIONS (1)
  - Cardiac disorder [Unknown]
